FAERS Safety Report 8977764 (Version 1)
Quarter: 2012Q4

REPORT INFORMATION
  Report Type: 
  Country: FR (occurrence: FR)
  Receive Date: 20121219
  Receipt Date: 20121219
  Transmission Date: 20130627
  Serious: Yes (Death)
  Sender: FDA-Public Use
  Company Number: FR-JNJFOC-20110712263

PATIENT
  Sex: Male

DRUGS (3)
  1. XARELTO [Suspect]
     Indication: HIP ARTHROPLASTY
     Route: 048
  2. XARELTO [Suspect]
     Indication: THROMBOSIS PROPHYLAXIS
     Route: 048
  3. MORPHINE SULFATE [Concomitant]
     Route: 065

REACTIONS (2)
  - Vomiting [Fatal]
  - Ileus [Fatal]
